FAERS Safety Report 10176012 (Version 2)
Quarter: 2014Q2

REPORT INFORMATION
  Report Type: Spontaneous
  Country: AR (occurrence: AR)
  Receive Date: 20140516
  Receipt Date: 20140527
  Transmission Date: 20141212
  Serious: Yes (Other)
  Sender: FDA-Public Use
  Company Number: AR-JNJFOC-20140506943

PATIENT
  Age: 70 Year
  Sex: Male

DRUGS (6)
  1. ABIRATERONE ACETATE [Suspect]
     Indication: PRODUCT USED FOR UNKNOWN INDICATION
     Route: 065
  2. PREDNISOLONE [Suspect]
     Indication: PRODUCT USED FOR UNKNOWN INDICATION
     Route: 065
  3. DALTEPARIN [Concomitant]
     Indication: THROMBOSIS PROPHYLAXIS
     Route: 065
  4. DEGARELIX [Concomitant]
     Route: 065
  5. ZOLEDRONIC ACID [Concomitant]
     Route: 065
  6. PANTOPRAZOL [Concomitant]
     Route: 065

REACTIONS (1)
  - Thrombocytopenia [Unknown]
